FAERS Safety Report 9873835 (Version 2)
Quarter: 2014Q1

REPORT INFORMATION
  Report Type: Other
  Country: US (occurrence: US)
  Receive Date: 20140206
  Receipt Date: 20140206
  Transmission Date: 20141002
  Serious: No
  Sender: FDA-Public Use
  Company Number: US-ACORDA-ACO_33455_2012

PATIENT
  Age: 68 Year
  Sex: Female
  Weight: 82.86 kg

DRUGS (2)
  1. AMPYRA [Suspect]
     Indication: MULTIPLE SCLEROSIS
     Dosage: 10 MG, BID
     Dates: start: 201007
  2. AVONEX [Concomitant]
     Indication: PRODUCT USED FOR UNKNOWN INDICATION
     Dosage: 30 MCG,  IM, WEEKLY
     Route: 030

REACTIONS (4)
  - Depression [Recovered/Resolved]
  - Pollakiuria [Unknown]
  - Urinary tract infection [Recovered/Resolved]
  - Nausea [Recovered/Resolved]
